FAERS Safety Report 5211911-1 (Version None)
Quarter: 2007Q1

REPORT INFORMATION
  Report Type: 
  Country: None (occurrence: None)
  Receive Date: 20070116
  Receipt Date: 20070116
  Transmission Date: 20070707
  Serious: Yes (Life-Threatening, Other)
  Sender: FDA-Public Use
  Company Number: None

PATIENT
  Age: 41 Year
  Sex: Female
  Weight: 58.0604 kg

DRUGS (6)
  1. DICLOFENAC SODIUM [Suspect]
     Indication: OSTEOARTHRITIS
     Dosage: 25 MG TWICE A DAY ORAL
     Route: 048
     Dates: start: 20060115, end: 20060801
  2. DICLOFENAC SODIUM [Suspect]
     Indication: PAIN
     Dosage: 25 MG TWICE A DAY ORAL
     Route: 048
     Dates: start: 20060115, end: 20060801
  3. FLONASE [Concomitant]
  4. ABILIFY [Concomitant]
  5. DIAZEPAM [Concomitant]
  6. SKELAXIN [Concomitant]

REACTIONS (6)
  - ACTIVITIES OF DAILY LIVING IMPAIRED [None]
  - BALANCE DISORDER [None]
  - CHEST PAIN [None]
  - COMA [None]
  - DISORIENTATION [None]
  - GAIT DISTURBANCE [None]
